FAERS Safety Report 7708894-9 (Version None)
Quarter: 2011Q3

REPORT INFORMATION
  Report Type: 
  Country: None (occurrence: None)
  Receive Date: 20110825
  Receipt Date: 20110811
  Transmission Date: 20111222
  Serious: Yes (Hospitalization)
  Sender: FDA-Public Use
  Company Number: DE-UCBSA-039143

PATIENT

DRUGS (2)
  1. OXCARBAZEPINE [Concomitant]
     Indication: EPILEPSY
  2. VIMPAT [Suspect]
     Indication: EPILEPSY

REACTIONS (1)
  - HYPONATRAEMIA [None]
